FAERS Safety Report 13080148 (Version 1)
Quarter: 2017Q1

REPORT INFORMATION
  Report Type: Spontaneous
  Country: PR (occurrence: PR)
  Receive Date: 20170103
  Receipt Date: 20170103
  Transmission Date: 20170428
  Serious: Yes (Hospitalization)
  Sender: FDA-Public Use
  Company Number: PR-PFIZER INC-2016594783

PATIENT
  Age: 64 Year
  Sex: Male
  Weight: 79.37 kg

DRUGS (1)
  1. SUTENT [Suspect]
     Active Substance: SUNITINIB MALATE
     Indication: RENAL NEOPLASM
     Dosage: 50 MG, CYCLIC (DAILY X 28 DAYS 2 WEEK REST)
     Route: 048
     Dates: start: 20160927

REACTIONS (7)
  - Tremor [Unknown]
  - Dysphagia [Unknown]
  - Mouth ulceration [Unknown]
  - Hyperchlorhydria [Unknown]
  - Rash [Unknown]
  - Decreased appetite [Unknown]
  - Abdominal pain upper [Unknown]
